FAERS Safety Report 4516711-3 (Version None)
Quarter: 2004Q4

REPORT INFORMATION
  Report Type: 
  Country: None (occurrence: None)
  Receive Date: 20041029
  Receipt Date: 20040726
  Transmission Date: 20050328
  Serious: No
  Sender: FDA-Public Use
  Company Number: 2004-119005-NL

PATIENT
  Age: 35 Year
  Sex: Female

DRUGS (8)
  1. NUVARING [Suspect]
     Indication: HORMONE REPLACEMENT THERAPY
     Dosage: DF DAILY VAGINAL
     Route: 067
     Dates: start: 20040714, end: 20040726
  2. NUVARING [Suspect]
     Indication: HYSTERECTOMY
     Dosage: DF DAILY VAGINAL
     Route: 067
     Dates: start: 20040714, end: 20040726
  3. OXYCONTIN [Concomitant]
  4. BENTYL [Concomitant]
  5. ACTONEL [Concomitant]
  6. PHENERGAN ORAL ^THERAPLIX^ [Concomitant]
  7. NITROFURANTOIN [Concomitant]
  8. MIRALAX [Concomitant]

REACTIONS (9)
  - ABDOMINAL DISTENSION [None]
  - ABDOMINAL PAIN [None]
  - ABDOMINAL TENDERNESS [None]
  - CHEST DISCOMFORT [None]
  - DYSPNOEA [None]
  - FATIGUE [None]
  - MIGRAINE [None]
  - NAUSEA [None]
  - PAIN IN EXTREMITY [None]
